FAERS Safety Report 14894781 (Version 1)
Quarter: 2018Q2

REPORT INFORMATION
  Report Type: Spontaneous
  Country: US (occurrence: US)
  Receive Date: 20180515
  Receipt Date: 20180515
  Transmission Date: 20180711
  Serious: No
  Sender: FDA-Public Use
  Company Number: US-TEVA-806242ACC

PATIENT
  Sex: Female

DRUGS (1)
  1. LOSARTAN. [Suspect]
     Active Substance: LOSARTAN
     Dosage: 1 DOSAGE FORMS DAILY; 1/2 TABLET IN MORNING 1/2 TABLET AT NIGHT

REACTIONS (2)
  - Balance disorder [Unknown]
  - Anxiety [Unknown]
